FAERS Safety Report 6834781-4 (Version None)
Quarter: 2010Q3

REPORT INFORMATION
  Report Type: 
  Country: None (occurrence: None)
  Receive Date: 20100712
  Receipt Date: 20070501
  Transmission Date: 20110219
  Serious: No
  Sender: FDA-Public Use
  Company Number: US-PFIZER INC-2007028605

PATIENT
  Sex: Female
  Weight: 75.75 kg

DRUGS (12)
  1. CHANTIX [Suspect]
     Indication: SMOKING CESSATION THERAPY
     Dates: start: 20070325
  2. FLUDROCORTISONE [Concomitant]
  3. TRICOR [Concomitant]
  4. NEXIUM [Concomitant]
  5. WELLBUTRIN XL [Concomitant]
  6. PREMARIN [Concomitant]
  7. ALLEGRA [Concomitant]
  8. LEXAPRO [Concomitant]
  9. GEODON [Concomitant]
  10. XANAX [Concomitant]
  11. MONTELUKAST SODIUM [Concomitant]
  12. IMITREX [Concomitant]

REACTIONS (2)
  - NAUSEA [None]
  - WEIGHT INCREASED [None]
